FAERS Safety Report 7584212-4 (Version None)
Quarter: 2011Q2

REPORT INFORMATION
  Report Type: 
  Country: None (occurrence: None)
  Receive Date: 20110628
  Receipt Date: 20110628
  Transmission Date: 20111010
  Serious: Yes (Hospitalization, Disabling)
  Sender: FDA-Public Use
  Company Number: None

PATIENT
  Sex: Female
  Weight: 95.2554 kg

DRUGS (1)
  1. HUMIRA [Suspect]
     Indication: CROHN'S DISEASE
     Dosage: 40 MG. EVERY TWO WEEKS
     Dates: start: 20100903, end: 20110311

REACTIONS (4)
  - OSTEONECROSIS [None]
  - FIBULA FRACTURE [None]
  - FALL [None]
  - TIBIA FRACTURE [None]
